FAERS Safety Report 9424776 (Version 1)
Quarter: 2013Q3

REPORT INFORMATION
  Report Type: Spontaneous
  Country: ES (occurrence: ES)
  Receive Date: 20130729
  Receipt Date: 20130729
  Transmission Date: 20140515
  Serious: Yes (Hospitalization, Other)
  Sender: FDA-Public Use
  Company Number: ES-009507513-1307ESP010666

PATIENT
  Age: 62 Year
  Sex: Female

DRUGS (3)
  1. VICTRELIS [Suspect]
     Indication: HEPATITIS C
     Dosage: 800 MG, TID
     Route: 048
     Dates: start: 201305
  2. PEGINTRON [Suspect]
     Indication: HEPATITIS C
     Dosage: UNK
     Route: 058
     Dates: start: 201304
  3. RIBAVIRIN [Suspect]
     Indication: HEPATITIS C
     Dosage: UNK
     Route: 048
     Dates: start: 201304

REACTIONS (6)
  - Atrial fibrillation [Not Recovered/Not Resolved]
  - Hepatitis C RNA [Unknown]
  - Malaise [Unknown]
  - Anaemia [Unknown]
  - Vomiting [Unknown]
  - Asthenia [Unknown]
